FAERS Safety Report 21865198 (Version 1)
Quarter: 2023Q1

REPORT INFORMATION
  Report Type: Report from Study
  Country: US (occurrence: US)
  Receive Date: 20230116
  Receipt Date: 20230116
  Transmission Date: 20230417
  Serious: No
  Sender: FDA-Public Use
  Company Number: US-ABBVIE-4234330

PATIENT
  Age: 59 Year
  Sex: Female

DRUGS (2)
  1. DUOPA [Suspect]
     Active Substance: CARBIDOPA\LEVODOPA
     Indication: Product used for unknown indication
     Route: 050
     Dates: start: 20190924
  2. DUOPA [Suspect]
     Active Substance: CARBIDOPA\LEVODOPA

REACTIONS (5)
  - Device breakage [Not Recovered/Not Resolved]
  - On and off phenomenon [Unknown]
  - Dyskinesia [Unknown]
  - Parkinson^s disease [Unknown]
  - Discomfort [Unknown]

NARRATIVE: CASE EVENT DATE: 20220801
